FAERS Safety Report 5015081-4 (Version None)
Quarter: 2006Q2

REPORT INFORMATION
  Report Type: 
  Country: None (occurrence: None)
  Receive Date: 20060530
  Receipt Date: 20060516
  Transmission Date: 20061013
  Serious: Yes (Hospitalization)
  Sender: FDA-Public Use
  Company Number: DEU-2006-0002219

PATIENT
  Age: 64 Year
  Sex: Male
  Weight: 97 kg

DRUGS (15)
  1. OXYCODONE HCL [Suspect]
     Indication: PAIN
     Dosage: 150 MG, DAILY, ORAL
     Route: 048
     Dates: start: 20060201, end: 20060201
  2. IBUPROFEN [Concomitant]
  3. LERCANIDIPINE [Concomitant]
  4. RAMIPRIL [Concomitant]
  5. ARELIX        (PIRETANIDE SODIUM) [Concomitant]
  6. BISOPROLOL FUMARATE [Concomitant]
  7. OMNIC           (TAMSULOSIN HYDROCHLORIDE) [Concomitant]
  8. SIMVASTATIN [Concomitant]
  9. PHENPROCOUMON [Concomitant]
  10. ACTRAPID HUMAN                   (INSULIN HUMAN) [Concomitant]
  11. PROTAPHAN HUMAN           (INSULIN HUMAN INJECTION, ISOPHANE) [Concomitant]
  12. TOREM          (TORASEMIDE) [Concomitant]
  13. TAMSULOSIN HCL [Concomitant]
  14. MOVICOL [Concomitant]
  15. GABAPENTIN [Concomitant]

REACTIONS (5)
  - ASTHENIA [None]
  - DRUG WITHDRAWAL SYNDROME [None]
  - GUILLAIN-BARRE SYNDROME [None]
  - MULTIPLE DRUG OVERDOSE [None]
  - SOMNOLENCE [None]
